FAERS Safety Report 4875682-0 (Version None)
Quarter: 2006Q1

REPORT INFORMATION
  Report Type: 
  Country: None (occurrence: None)
  Receive Date: 20060109
  Receipt Date: 20051227
  Transmission Date: 20060701
  Serious: Yes (Hospitalization)
  Sender: FDA-Public Use
  Company Number: JP-JNJFOC-20051201598

PATIENT
  Sex: Female

DRUGS (16)
  1. RISPERDAL [Suspect]
     Route: 048
  2. RISPERDAL [Suspect]
     Indication: DEMENTIA
     Route: 048
  3. BENZBROMARONE [Concomitant]
     Route: 048
  4. ALLOPURINOL [Concomitant]
     Route: 048
  5. LOSARTAN POTASSIUM [Concomitant]
     Route: 048
  6. DILTIAZEM HYDROCHLORIDE [Concomitant]
     Route: 048
  7. FUROSEMIDE [Concomitant]
     Route: 048
  8. NIZATIDINE [Concomitant]
     Route: 048
  9. ETHYL ICOSAPENTATE [Concomitant]
     Route: 048
  10. BERAPROST SODIUM [Concomitant]
     Route: 048
  11. ASPIRIN-DIALUMINATE [Concomitant]
     Route: 048
  12. ASPIRIN-DIALUMINATE [Concomitant]
     Route: 048
  13. ASPIRIN-DIALUMINATE [Concomitant]
     Route: 048
  14. FERROUS CITRATE [Concomitant]
     Route: 048
  15. LOXOPROFEN SODIUM [Concomitant]
     Route: 048
  16. REBAMIPIDE [Concomitant]
     Route: 048

REACTIONS (2)
  - PNEUMONIA [None]
  - RESPIRATORY DEPRESSION [None]
